FAERS Safety Report 9858510 (Version 3)
Quarter: 2014Q4

REPORT INFORMATION
  Report Type: Spontaneous
  Country: US (occurrence: US)
  Receive Date: 20140131
  Receipt Date: 20141013
  Transmission Date: 20150529
  Serious: Yes (Hospitalization, Other)
  Sender: FDA-Public Use
  Company Number: US-BAYER-2014-015038

PATIENT
  Age: 27 Year
  Sex: Female
  Weight: 92.97 kg

DRUGS (2)
  1. LEVOTHYROXINE [Concomitant]
     Active Substance: LEVOTHYROXINE
     Indication: HYPOTHYROIDISM
     Dosage: 300 MCG
     Dates: start: 2009
  2. MIRENA [Suspect]
     Active Substance: LEVONORGESTREL
     Indication: CONTRACEPTION
     Dosage: 20 MCG/24HR, CONT
     Route: 015
     Dates: start: 20090728, end: 20130201

REACTIONS (13)
  - Emotional distress [None]
  - Anxiety [None]
  - Device difficult to use [None]
  - Genital haemorrhage [None]
  - Pain [None]
  - Pregnancy with contraceptive device [None]
  - Drug ineffective [None]
  - Internal injury [None]
  - Fear [None]
  - Injury [None]
  - Depression [None]
  - Uterine perforation [None]
  - Medical device discomfort [None]

NARRATIVE: CASE EVENT DATE: 2012
